FAERS Safety Report 7576128-4 (Version None)
Quarter: 2011Q2

REPORT INFORMATION
  Report Type: 
  Country: None (occurrence: None)
  Receive Date: 20110628
  Receipt Date: 20110615
  Transmission Date: 20111010
  Serious: Yes (Hospitalization)
  Sender: FDA-Public Use
  Company Number: US-ELI_LILLY_AND_COMPANY-US201101002432

PATIENT
  Age: 79 Year
  Sex: Female

DRUGS (1)
  1. FORTEO [Suspect]
     Indication: OSTEOPOROSIS
     Dosage: UNK, UNKNOWN

REACTIONS (7)
  - BLOOD PRESSURE INCREASED [None]
  - ARTHROPATHY [None]
  - PRESYNCOPE [None]
  - PAIN OF SKIN [None]
  - FUNGAL INFECTION [None]
  - SKIN EXFOLIATION [None]
  - PROTHROMBIN TIME PROLONGED [None]
